FAERS Safety Report 8570353-1 (Version None)
Quarter: 2012Q3

REPORT INFORMATION
  Report Type: 
  Country: None (occurrence: None)
  Receive Date: 20120803
  Receipt Date: 20120723
  Transmission Date: 20120928
  Serious: Yes (Other)
  Sender: FDA-Public Use
  Company Number: GB-ELI_LILLY_AND_COMPANY-GB201206004561

PATIENT
  Sex: Male

DRUGS (14)
  1. BYDUREON [Suspect]
     Indication: TYPE 2 DIABETES MELLITUS
     Dosage: 2 MG, WEEKLY (1/W)
     Route: 058
     Dates: start: 20120322, end: 20120401
  2. WARFARIN SODIUM [Concomitant]
  3. FUROSEMIDE [Concomitant]
  4. ISOSORBIDE MONONITRATE [Concomitant]
  5. EZETIMIBE [Concomitant]
  6. FENOFIBRATE [Concomitant]
  7. PREGABALIN [Concomitant]
  8. SPIRONOLACTONE [Concomitant]
  9. ACE INHIBITORS [Concomitant]
  10. CHOLECALCIFEROL [Concomitant]
  11. LANSOPRAZOLE [Concomitant]
  12. ROSUVASTATIN [Concomitant]
  13. BYETTA [Suspect]
  14. CARVEDILOL [Concomitant]

REACTIONS (6)
  - LIP SWELLING [None]
  - RASH PRURITIC [None]
  - PRURITUS [None]
  - FEELING HOT [None]
  - FLUSHING [None]
  - MALAISE [None]
